FAERS Safety Report 8307857-2 (Version None)
Quarter: 2012Q2

REPORT INFORMATION
  Report Type: 
  Country: None (occurrence: None)
  Receive Date: 20120424
  Receipt Date: 20120411
  Transmission Date: 20120825
  Serious: Yes (Hospitalization)
  Sender: FDA-Public Use
  Company Number: DE-CELGENEUS-062-21880-12040224

PATIENT
  Age: 66 Year
  Sex: Female
  Weight: 56 kg

DRUGS (11)
  1. REVLIMID [Suspect]
     Dosage: 25 MILLIGRAM
     Route: 048
     Dates: start: 20120309, end: 20120317
  2. COTRIMAZOL [Concomitant]
     Route: 065
     Dates: start: 20120321
  3. REVLIMID [Suspect]
     Dosage: 25 MILLIGRAM
     Route: 048
     Dates: start: 20120330, end: 20120402
  4. REVLIMID [Suspect]
     Dosage: 10 MILLIGRAM
     Route: 048
     Dates: start: 20120402
  5. ACYCLOVIR [Suspect]
     Dosage: 4 GRAM
     Route: 065
     Dates: start: 20120330, end: 20120402
  6. ACYCLOVIR [Suspect]
     Dosage: 1200 MILLIGRAM
     Route: 065
     Dates: start: 20120402, end: 20120405
  7. LITHIUM CARBONATE [Concomitant]
     Indication: BIPOLAR DISORDER
     Dosage: 400 MILLIGRAM
     Route: 065
  8. LEVOTHYROXINE SODIUM [Concomitant]
     Indication: HYPOTHYROIDISM
     Dosage: 50 MICROGRAM
     Route: 065
  9. PANTOPRAZOLE [Concomitant]
     Dosage: 40 MILLIGRAM
     Route: 065
  10. MIRTAZAPINE [Concomitant]
     Dosage: 15 MILLIGRAM
     Route: 065
  11. REVLIMID [Suspect]
     Route: 048
     Dates: start: 20120324, end: 20120328

REACTIONS (2)
  - BLOOD CREATININE INCREASED [None]
  - RENAL FAILURE ACUTE [None]
